FAERS Safety Report 21483818 (Version 2)
Quarter: 2023Q1

REPORT INFORMATION
  Report Type: Report from Study
  Country: US (occurrence: US)
  Receive Date: 20221020
  Receipt Date: 20230106
  Transmission Date: 20230418
  Serious: No
  Sender: FDA-Public Use
  Company Number: US-ABBVIE-4161302

PATIENT
  Age: 79 Year
  Sex: Female

DRUGS (1)
  1. IMBRUVICA [Suspect]
     Active Substance: IBRUTINIB
     Indication: Chronic lymphocytic leukaemia
     Route: 048
     Dates: start: 201802

REACTIONS (5)
  - Immunodeficiency [Unknown]
  - Headache [Unknown]
  - Nausea [Unknown]
  - Swelling [Unknown]
  - Malaise [Unknown]

NARRATIVE: CASE EVENT DATE: 20221010
